FAERS Safety Report 19310233 (Version 1)
Quarter: 2021Q2

REPORT INFORMATION
  Report Type: Spontaneous
  Country: CN (occurrence: CN)
  Receive Date: 20210526
  Receipt Date: 20210526
  Transmission Date: 20210717
  Serious: Yes (Life-Threatening, Hospitalization, Disabling, Other)
  Sender: FDA-Public Use
  Company Number: CN-PFIZER INC-2021542527

PATIENT
  Age: 73 Year
  Sex: Male
  Weight: 50 kg

DRUGS (3)
  1. VORICONAZOLE. [Suspect]
     Active Substance: VORICONAZOLE
     Indication: INTRACRANIAL INFECTION
     Dosage: 0.2 G, ONCE A DAY
     Route: 041
     Dates: start: 20210418, end: 20210424
  2. RIFAMPICIN [Suspect]
     Active Substance: RIFAMPIN
     Indication: INTRACRANIAL INFECTION
     Dosage: 4.5 G, ONCE A DAY
     Route: 041
     Dates: start: 20210418, end: 20210424
  3. ISONIAZID. [Suspect]
     Active Substance: ISONIAZID
     Indication: INTRACRANIAL INFECTION
     Dosage: 0.6 G, ONCE A DAY
     Route: 041
     Dates: start: 20210418, end: 20210424

REACTIONS (4)
  - Acute hepatic failure [Not Recovered/Not Resolved]
  - Prothrombin time prolonged [Not Recovered/Not Resolved]
  - Coagulopathy [Not Recovered/Not Resolved]
  - Off label use [Unknown]

NARRATIVE: CASE EVENT DATE: 20210418
